FAERS Safety Report 4999970-2 (Version None)
Quarter: 2006Q2

REPORT INFORMATION
  Report Type: 
  Country: None (occurrence: None)
  Receive Date: 20060501
  Receipt Date: 20060419
  Transmission Date: 20061013
  Serious: Yes (Death, Hospitalization)
  Sender: FDA-Public Use
  Company Number: 2006037070

PATIENT
  Age: 63 Year
  Sex: Male
  Weight: 75.2 kg

DRUGS (1)
  1. SUTENT [Suspect]
     Indication: METASTATIC RENAL CELL CARCINOMA
     Dosage: 50 MG (50 MG, QD, INTERVAL: DAILY), ORAL
     Route: 048
     Dates: start: 20060220, end: 20060312

REACTIONS (6)
  - DISEASE PROGRESSION [None]
  - ENTERITIS [None]
  - LETHARGY [None]
  - PERFORMANCE STATUS DECREASED [None]
  - PERITONITIS BACTERIAL [None]
  - SUPERINFECTION [None]
